FAERS Safety Report 9866781 (Version 2)
Quarter: 2014Q1

REPORT INFORMATION
  Report Type: Spontaneous
  Country: CA (occurrence: CA)
  Receive Date: 20140204
  Receipt Date: 20140228
  Transmission Date: 20141002
  Serious: Yes (Hospitalization, Other)
  Sender: FDA-Public Use
  Company Number: CA-AMGEN-CANSP2014006848

PATIENT
  Age: 75 Year
  Sex: Female
  Weight: 79.37 kg

DRUGS (14)
  1. PROLIA [Suspect]
     Indication: OSTEOPOROSIS POSTMENOPAUSAL
     Dosage: 60 MG, Q6MO
     Route: 058
     Dates: start: 20120717
  2. CALCIUM + VITAMIN D                /01483701/ [Concomitant]
     Dosage: 1000 UNK, QD
  3. ZYLOPRIM [Concomitant]
     Dosage: 300 UNK, QD
  4. ALTACE [Concomitant]
     Dosage: 25 MG, QD
  5. ALDACTONE                          /00006201/ [Concomitant]
     Dosage: 25 MG, QD
  6. CARDIZEM CD [Concomitant]
     Dosage: 240 UNK, QD
  7. PANTOLOC                           /01263204/ [Concomitant]
     Dosage: 40 MG, QD
  8. LASIX                              /00032601/ [Concomitant]
     Dosage: 80 MG, QD
  9. LIPITOR [Concomitant]
     Dosage: 20 MG, QD
  10. COUMADIN                           /00014802/ [Concomitant]
     Dosage: 5 MG, UNK
  11. SPIRIVA [Concomitant]
     Dosage: 18 UNK, UNK
  12. ADVAIR [Concomitant]
     Dosage: 250 UNK, BID
  13. NITRO DUR [Concomitant]
     Dosage: 0.6 UNK, QD
  14. LAX-A-DAY [Concomitant]
     Dosage: UNK UNK, BID

REACTIONS (3)
  - Sternal fracture [Unknown]
  - Syncope [Unknown]
  - Fall [Recovered/Resolved]
